FAERS Safety Report 7404103-9 (Version None)
Quarter: 2011Q2

REPORT INFORMATION
  Report Type: 
  Country: None (occurrence: None)
  Receive Date: 20110408
  Receipt Date: 20110330
  Transmission Date: 20111010
  Serious: Yes (Other)
  Sender: FDA-Public Use
  Company Number: US-ASTRAZENECA-2009SE24460

PATIENT
  Age: 82 Year
  Sex: Female
  Weight: 71.2 kg

DRUGS (10)
  1. TAZTIA XT [Concomitant]
     Route: 048
  2. REGLAN [Concomitant]
     Route: 048
  3. LORTAB [Concomitant]
     Indication: PAIN
     Dosage: 10/450 MG EVERY 6 HOURS
     Route: 048
     Dates: start: 20090804
  4. SERTRALINE HYDROCHLORIDE [Concomitant]
     Route: 048
  5. LIPITOR [Concomitant]
     Route: 048
  6. ALPRAZOLAM [Concomitant]
     Route: 048
  7. NEXIUM [Suspect]
     Route: 048
  8. LISINOPRIL [Concomitant]
     Route: 048
  9. FUROSEMIDE [Concomitant]
     Route: 048
  10. LEVOTHYROXINE [Concomitant]
     Route: 048

REACTIONS (3)
  - PARKINSON'S DISEASE [None]
  - FALL [None]
  - UPPER LIMB FRACTURE [None]
